FAERS Safety Report 17337004 (Version 4)
Quarter: 2020Q2

REPORT INFORMATION
  Report Type: Spontaneous
  Country: US (occurrence: US)
  Receive Date: 20200128
  Receipt Date: 20200507
  Transmission Date: 20200713
  Serious: Yes (Other)
  Sender: FDA-Public Use
  Company Number: US-PFIZER INC-2020036945

PATIENT
  Age: 71 Year
  Sex: Male

DRUGS (1)
  1. IBRANCE [Suspect]
     Active Substance: PALBOCICLIB
     Indication: PROSTATE CANCER METASTATIC
     Dosage: 125 MG, CYCLIC (125 MG, DAILY FOR 21 DAYS AND 7 DAY OFF)
     Route: 048
     Dates: start: 20191112, end: 20200227

REACTIONS (4)
  - Anaemia [Recovered/Resolved]
  - Product use in unapproved indication [Unknown]
  - Pancytopenia [Unknown]
  - Off label use [Unknown]

NARRATIVE: CASE EVENT DATE: 20191112
